FAERS Safety Report 4705397-0 (Version None)
Quarter: 2005Q3

REPORT INFORMATION
  Report Type: 
  Country: None (occurrence: None)
  Receive Date: 20050701
  Receipt Date: 20010712
  Transmission Date: 20060218
  Serious: Yes (Hospitalization)
  Sender: FDA-Public Use
  Company Number: FR-GLAXOSMITHKLINE-B0114304A

PATIENT
  Sex: Male
  Weight: 3 kg

DRUGS (13)
  1. ZIAGEN [Suspect]
     Indication: HIV INFECTION
     Dosage: 300MG TWICE PER DAY
  2. VIDEX [Suspect]
     Indication: ANTIVIRAL PROPHYLAXIS
     Route: 048
     Dates: start: 20000316
  3. VIRAMUNE [Suspect]
     Indication: ANTIVIRAL PROPHYLAXIS
     Dosage: 1UNIT PER DAY
     Route: 048
     Dates: start: 20000317, end: 20000317
  4. VIRAMUNE [Suspect]
     Indication: HIV INFECTION
     Dosage: 200MG PER DAY
     Dates: start: 20000316, end: 20000316
  5. VIDEX [Suspect]
     Indication: HIV INFECTION
     Dosage: 150MG TWICE PER DAY
  6. CRIXIVAN [Suspect]
     Indication: HIV INFECTION
  7. NORVIR [Suspect]
     Indication: HIV INFECTION
     Dosage: 100MG TWICE PER DAY
  8. AUGMENTIN [Concomitant]
  9. COLPOSEPTINE [Concomitant]
  10. GYNOPEVARYL [Concomitant]
  11. IRON [Concomitant]
  12. POLYGYNAX [Concomitant]
  13. VITAMINS [Concomitant]

REACTIONS (10)
  - ANAEMIA [None]
  - BLOOD LACTIC ACID INCREASED [None]
  - BLOOD PYRUVIC ACID DECREASED [None]
  - DRUG EXPOSURE DURING PREGNANCY [None]
  - HYPERTRIGLYCERIDAEMIA [None]
  - METABOLIC DISORDER [None]
  - MICROCYTOSIS [None]
  - NEUTROPENIA [None]
  - SPEECH DISORDER DEVELOPMENTAL [None]
  - THALASSAEMIA [None]
